FAERS Safety Report 12616606 (Version 1)
Quarter: 2016Q3

REPORT INFORMATION
  Report Type: Spontaneous
  Country: US (occurrence: US)
  Receive Date: 20160802
  Receipt Date: 20160802
  Transmission Date: 20161109
  Serious: No
  Sender: FDA-Public Use
  Company Number: US-ELI_LILLY_AND_COMPANY-US201607005087

PATIENT
  Sex: Female

DRUGS (2)
  1. TRULICITY [Suspect]
     Active Substance: DULAGLUTIDE
     Dosage: 1.5 MG, UNKNOWN
     Route: 065
  2. TRULICITY [Suspect]
     Active Substance: DULAGLUTIDE
     Indication: DIABETES MELLITUS
     Dosage: 0.75 MG, UNKNOWN
     Route: 065
     Dates: start: 201605

REACTIONS (6)
  - Malaise [Unknown]
  - Injection site erythema [Unknown]
  - Vomiting [Recovered/Resolved]
  - Drug dose omission [Unknown]
  - Nausea [Unknown]
  - Injection site bruising [Unknown]

NARRATIVE: CASE EVENT DATE: 20160713
